FAERS Safety Report 18479949 (Version 1)
Quarter: 2020Q4

REPORT INFORMATION
  Report Type: Spontaneous
  Country: GB (occurrence: GB)
  Receive Date: 20201109
  Receipt Date: 20201109
  Transmission Date: 20210114
  Serious: Yes (Other)
  Sender: FDA-Public Use
  Company Number: GB-TEVA-2020-GB-1845391

PATIENT
  Age: 62 Year
  Sex: Female
  Weight: 78.01 kg

DRUGS (7)
  1. CETIRIZINE [Concomitant]
     Active Substance: CETIRIZINE HYDROCHLORIDE
     Dosage: NOT WHILST ON FEXOFENADINE, DOSE: 10 MG
     Dates: start: 20180301, end: 20201008
  2. OMEPRAZOLE. [Concomitant]
     Active Substance: OMEPRAZOLE
     Dosage: 2 HOURS AFTER FEXOFENADINE, UNIT DOSE: 10 MG
  3. VITAMIN D [Concomitant]
     Active Substance: VITAMIN D NOS
  4. FEXOFENADINE [Suspect]
     Active Substance: FEXOFENADINE HYDROCHLORIDE
     Indication: RASH
     Dosage: 180 MG
     Route: 048
     Dates: start: 20201008, end: 20201011
  5. THIAMINE. [Concomitant]
     Active Substance: THIAMINE
  6. COD-LIVER OIL [Concomitant]
     Active Substance: COD LIVER OIL
  7. LISINOPRIL DIHYDRATE [Concomitant]
     Active Substance: LISINOPRIL
     Dosage: 10 MG

REACTIONS (5)
  - Hyperhidrosis [Not Recovered/Not Resolved]
  - Abdominal pain upper [Not Recovered/Not Resolved]
  - Dizziness [Not Recovered/Not Resolved]
  - Nausea [Not Recovered/Not Resolved]
  - Diarrhoea [Not Recovered/Not Resolved]

NARRATIVE: CASE EVENT DATE: 20201010
